FAERS Safety Report 15679068 (Version 7)
Quarter: 2019Q4

REPORT INFORMATION
  Report Type: Spontaneous
  Country: TW (occurrence: TW)
  Receive Date: 20181203
  Receipt Date: 20191219
  Transmission Date: 20200122
  Serious: Yes (Hospitalization, Other)
  Sender: FDA-Public Use
  Company Number: TW-AMGEN-TWNSP2018171112

PATIENT
  Age: 75 Year
  Sex: Female

DRUGS (8)
  1. CELEBREX [Concomitant]
     Active Substance: CELECOXIB
     Dosage: 200 MILLIGRAM, QD
  2. ARHEUMA [Concomitant]
     Dosage: 20 MILLIGRAM, QD
  3. ENBREL [Suspect]
     Active Substance: ETANERCEPT
     Indication: RHEUMATOID ARTHRITIS
     Dosage: 25 MILLIGRAM, 2 TIMES/WK
     Route: 042
     Dates: start: 201505
  4. PREDNISOLONE. [Concomitant]
     Active Substance: PREDNISOLONE
     Dosage: 1 DOSAGE FORM, BID
  5. LIVALO [Concomitant]
     Active Substance: PITAVASTATIN CALCIUM
     Dosage: 1 DOSAGE FORM, QD
  6. SALAZINE [Concomitant]
     Active Substance: SULFASALAZINE
     Dosage: 2 MILLIGRAM, QD
  7. ENBREL [Suspect]
     Active Substance: ETANERCEPT
     Dosage: UNK
     Route: 042
     Dates: end: 20190115
  8. ENBREL [Suspect]
     Active Substance: ETANERCEPT
     Dosage: 25 MG, Q4DAY
     Route: 042
     Dates: end: 2018

REACTIONS (10)
  - Feeling hot [Unknown]
  - Anastomotic ulcer [Unknown]
  - Product use issue [Unknown]
  - Peripheral swelling [Recovered/Resolved]
  - Infection [Unknown]
  - Erythema [Recovered/Resolved]
  - Off label use [Unknown]
  - Cellulitis [Recovering/Resolving]
  - Disease recurrence [Recovering/Resolving]
  - Duodenal ulcer [Unknown]

NARRATIVE: CASE EVENT DATE: 201505
